FAERS Safety Report 20463275 (Version 1)
Quarter: 2022Q1

REPORT INFORMATION
  Report Type: Spontaneous
  Country: US (occurrence: US)
  Receive Date: 20220211
  Receipt Date: 20220211
  Transmission Date: 20220423
  Serious: No
  Sender: FDA-Public Use
  Company Number: US-ARBOR PHARMACEUTICALS, LLC-US-2021ARB000389

PATIENT
  Age: 76 Year
  Sex: Female

DRUGS (1)
  1. EDARBYCLOR [Suspect]
     Active Substance: AZILSARTAN KAMEDOXOMIL\CHLORTHALIDONE
     Indication: Hypertension
     Dosage: 40/12.5 MG
     Route: 065
     Dates: start: 2021

REACTIONS (11)
  - Eructation [Unknown]
  - Thirst [Unknown]
  - Heart rate irregular [Unknown]
  - Decreased appetite [Unknown]
  - Vision blurred [Unknown]
  - Chills [Unknown]
  - Dry mouth [Unknown]
  - Dry eye [Unknown]
  - Headache [Unknown]
  - Nausea [Unknown]
  - Fatigue [Unknown]

NARRATIVE: CASE EVENT DATE: 20210101
